FAERS Safety Report 8451998 (Version 7)
Quarter: 2013Q3

REPORT INFORMATION
  Report Type: Spontaneous
  Country: US (occurrence: US)
  Receive Date: 20120309
  Receipt Date: 20130917
  Transmission Date: 20140515
  Serious: Yes (Hospitalization, Other)
  Sender: FDA-Public Use
  Company Number: US-PFIZER INC-2012061035

PATIENT
  Age: 76 Year
  Sex: Female
  Weight: 72.56 kg

DRUGS (9)
  1. LYRICA [Suspect]
     Indication: OSTEOARTHRITIS
     Dosage: UNK
  2. LYRICA [Suspect]
     Indication: FIBROMYALGIA
     Dosage: UNK, THREE TIMES EACH DAY
  3. LYRICA [Suspect]
     Dosage: 150 MG, 3X/DAY
     Route: 048
     Dates: start: 2009
  4. CYMBALTA [Concomitant]
     Dosage: 30 MG, 1X/DAY
  5. FERROUS SULPHATE [Concomitant]
     Indication: MINERAL SUPPLEMENTATION
     Dosage: 325 MG, 2X/DAY
  6. LORAZEPAM [Concomitant]
     Indication: ANXIETY
     Dosage: 0.5 MG, 3X/DAY
  7. SKELAXIN [Concomitant]
     Indication: MUSCLE RELAXANT THERAPY
     Dosage: 800 MG, 3X/DAY
  8. SINGULAIR [Concomitant]
     Indication: SINUS DISORDER
     Dosage: 10 MG, 1X/DAY
  9. ZANAFLEX [Concomitant]
     Indication: MIGRAINE
     Dosage: 4 MG, 1X/DAY

REACTIONS (4)
  - Talipes [Unknown]
  - Stress fracture [Unknown]
  - Wound infection [Unknown]
  - Staphylococcal infection [Unknown]
